FAERS Safety Report 4512564-8 (Version None)
Quarter: 2004Q4

REPORT INFORMATION
  Report Type: 
  Country: None (occurrence: None)
  Receive Date: 20041008
  Receipt Date: 20040816
  Transmission Date: 20050328
  Serious: Yes (Other)
  Sender: FDA-Public Use
  Company Number: 377903

PATIENT
  Sex: Male

DRUGS (1)
  1. FUZEON [Suspect]

REACTIONS (2)
  - INJECTION SITE PAIN [None]
  - INJECTION SITE SWELLING [None]
